FAERS Safety Report 14417156 (Version 2)
Quarter: 2018Q1

REPORT INFORMATION
  Report Type: Spontaneous
  Country: US (occurrence: US)
  Receive Date: 20180122
  Receipt Date: 20180222
  Transmission Date: 20180509
  Serious: No
  Sender: FDA-Public Use
  Company Number: US-PFIZER INC-2018026824

PATIENT
  Age: 72 Year
  Sex: Female

DRUGS (1)
  1. GENOTROPIN MQ [Suspect]
     Active Substance: SOMATROPIN
     Indication: GROWTH HORMONE DEFICIENCY
     Dosage: 0.25 ML, CYCLIC (FIVE DAYS EACH WEEK; DO NOT SKIP CONSECUTIVE DAYS)
     Route: 058

REACTIONS (4)
  - Drug dose omission [Unknown]
  - Condition aggravated [Unknown]
  - Malaise [Unknown]
  - Balance disorder [Unknown]
